FAERS Safety Report 4950331-1 (Version None)
Quarter: 2006Q1

REPORT INFORMATION
  Report Type: 
  Country: None (occurrence: None)
  Receive Date: 20060315
  Receipt Date: 20060307
  Transmission Date: 20060701
  Serious: Yes (Hospitalization)
  Sender: FDA-Public Use
  Company Number: 2006-00868

PATIENT
  Sex: Male

DRUGS (1)
  1. KENTERA (WATSON LABORATORIES) (OXYBUTYNIN) TRANSDERMAL PATCH, 3.9MG [Suspect]
     Indication: URINARY INCONTINENCE
     Dosage: TRANSDERMAL
     Route: 062

REACTIONS (2)
  - MICTURITION FREQUENCY DECREASED [None]
  - URINARY RETENTION [None]
